FAERS Safety Report 7035779-6 (Version None)
Quarter: 2010Q4

REPORT INFORMATION
  Report Type: 
  Country: None (occurrence: None)
  Receive Date: 20101008
  Receipt Date: 20100929
  Transmission Date: 20110411
  Serious: Yes (Other)
  Sender: FDA-Public Use
  Company Number: JP-ABBOTT-09P-087-0573657-00

PATIENT
  Age: 79 Year
  Sex: Male

DRUGS (8)
  1. LEUPROLIDE ACETATE [Suspect]
     Indication: PROSTATE CANCER STAGE III
     Route: 058
     Dates: start: 20071015
  2. ZYLORIC [Concomitant]
     Indication: HYPERURICAEMIA
     Route: 048
  3. WARFARIN [Concomitant]
     Indication: ATRIAL FIBRILLATION
     Route: 048
  4. DIGOXIN [Concomitant]
     Indication: ATRIAL FIBRILLATION
     Route: 048
  5. TAMSULOSIN HCL [Concomitant]
     Indication: BENIGN PROSTATIC HYPERPLASIA
     Route: 048
  6. MUCOSTA [Concomitant]
     Indication: GASTRITIS
     Route: 048
  7. MUCOSTA [Concomitant]
     Route: 048
  8. DETRUSITOL [Concomitant]
     Indication: HYPERTONIC BLADDER
     Route: 048
     Dates: start: 20080801

REACTIONS (1)
  - SICK SINUS SYNDROME [None]
